FAERS Safety Report 8312490-2 (Version None)
Quarter: 2012Q2

REPORT INFORMATION
  Report Type: 
  Country: None (occurrence: None)
  Receive Date: 20120425
  Receipt Date: 20120419
  Transmission Date: 20120825
  Serious: Yes (Other)
  Sender: FDA-Public Use
  Company Number: JP-MERCK-1204USA03513

PATIENT
  Age: 65 Year
  Sex: Female

DRUGS (4)
  1. ATELEC [Concomitant]
     Route: 048
  2. DOXAZOSIN MESYLATE [Concomitant]
     Route: 048
  3. PEPCID [Suspect]
     Route: 048
     Dates: start: 20120402, end: 20120419
  4. ISOSORBIDE MONONITRATE [Concomitant]
     Route: 048

REACTIONS (1)
  - HAEMOLYTIC ANAEMIA [None]
